FAERS Safety Report 21451756 (Version 2)
Quarter: 2023Q1

REPORT INFORMATION
  Report Type: Report from Study
  Country: US (occurrence: US)
  Receive Date: 20221013
  Receipt Date: 20230210
  Transmission Date: 20230418
  Serious: Yes (Death, Hospitalization, Other)
  Sender: FDA-Public Use
  Company Number: US-NOVARTISPH-NVSC2022US114823

PATIENT
  Age: 47 Year
  Sex: Male
  Weight: 103.9 kg

DRUGS (4)
  1. LUTATHERA [Suspect]
     Active Substance: LUTETIUM OXODOTREOTIDE LU-177
     Indication: Neuroendocrine tumour
     Dosage: 200 MCI (FULL DOSE)
     Route: 042
     Dates: start: 20200131, end: 20200716
  2. LUTATHERA [Suspect]
     Active Substance: LUTETIUM OXODOTREOTIDE LU-177
     Dosage: 200 MCI (FULL DOSE)
     Route: 042
     Dates: start: 20200131, end: 20200716
  3. LUTATHERA [Suspect]
     Active Substance: LUTETIUM OXODOTREOTIDE LU-177
     Dosage: 200 MCI (FULL DOSE)
     Route: 042
     Dates: start: 20200131, end: 20200716
  4. LUTATHERA [Suspect]
     Active Substance: LUTETIUM OXODOTREOTIDE LU-177
     Dosage: 200 MCI (FULL DOSE)
     Route: 042
     Dates: start: 20200131, end: 20200716

REACTIONS (10)
  - Pancreatic neuroendocrine tumour [Fatal]
  - Metastases to liver [Fatal]
  - Metastases to bone [Fatal]
  - Neuroendocrine tumour [Fatal]
  - Malignant neoplasm progression [Fatal]
  - Hyperacusis [Recovering/Resolving]
  - Vomiting [Recovering/Resolving]
  - Retching [Recovering/Resolving]
  - Pyrexia [Recovered/Resolved]
  - Photophobia [Recovering/Resolving]

NARRATIVE: CASE EVENT DATE: 20210702
